FAERS Safety Report 6028490-1 (Version None)
Quarter: 2008Q4

REPORT INFORMATION
  Report Type: 
  Country: None (occurrence: None)
  Receive Date: 20081222
  Receipt Date: 20081024
  Transmission Date: 20090506
  Serious: No
  Sender: FDA-Public Use
  Company Number: US-WYE-H06550108

PATIENT
  Age: 58 Year
  Sex: Female
  Weight: 122.58 kg

DRUGS (8)
  1. PRISTIQ [Suspect]
     Indication: DEPRESSION
     Dosage: 50 MG 1X PER DAY, ORAL
     Route: 048
     Dates: start: 20081022, end: 20081023
  2. LYRICA [Concomitant]
  3. LASIX [Concomitant]
  4. LORAZEPAM [Concomitant]
  5. HYDROCODONE (HYDROCODONE) [Concomitant]
  6. ZOCOR [Concomitant]
  7. CARDIZEM [Concomitant]
  8. BENICAR [Concomitant]

REACTIONS (3)
  - FEELING ABNORMAL [None]
  - NIGHTMARE [None]
  - VISION BLURRED [None]
